FAERS Safety Report 4996325-1 (Version None)
Quarter: 2006Q2

REPORT INFORMATION
  Report Type: 
  Country: None (occurrence: None)
  Receive Date: 20060505
  Receipt Date: 20060419
  Transmission Date: 20061013
  Serious: Yes (Other)
  Sender: FDA-Public Use
  Company Number: 222265

PATIENT

DRUGS (1)
  1. AVASTIN (NEVACIZUMAB) PWDR + SOLVENT, INFUSION SOLN, 100 MG [Suspect]
     Indication: COLORECTAL CANCER

REACTIONS (2)
  - CHOLECYSTITIS [None]
  - OBSTRUCTION [None]
